FAERS Safety Report 10713571 (Version 2)
Quarter: 2015Q1

REPORT INFORMATION
  Report Type: Spontaneous
  Country: CN (occurrence: CN)
  Receive Date: 20150115
  Receipt Date: 20150129
  Transmission Date: 20150721
  Serious: Yes (Hospitalization, Other)
  Sender: FDA-Public Use
  Company Number: CN-PFIZER INC-2015014128

PATIENT
  Age: 47 Year
  Sex: Female
  Weight: 56 kg

DRUGS (4)
  1. ALPHA LIPOIC ACID [Concomitant]
     Active Substance: .ALPHA.-LIPOIC ACID
     Indication: DIABETES MELLITUS
     Dosage: 0.6 G, 1X/DAY
     Route: 041
     Dates: start: 20140629, end: 20140707
  2. GLUCOPHAGE [Concomitant]
     Active Substance: METFORMIN HYDROCHLORIDE
     Indication: DIABETES MELLITUS
     Dosage: 850 MG, 2X/DAY
     Route: 048
     Dates: start: 20140629, end: 20140707
  3. CEFMETAZOLE SODIUM [Suspect]
     Active Substance: CEFMETAZOLE SODIUM
     Indication: SYNOVITIS
     Dosage: 1 G, 2X/DAY
     Route: 041
     Dates: start: 20140703, end: 20140704
  4. CELEBREX [Suspect]
     Active Substance: CELECOXIB
     Indication: SYNOVITIS
     Dosage: 200 MG, 2X/DAY
     Route: 048
     Dates: start: 20140629, end: 20140706

REACTIONS (4)
  - Pruritus [Recovering/Resolving]
  - Dermatitis allergic [Recovering/Resolving]
  - Generalised erythema [Recovering/Resolving]
  - Rash [Recovering/Resolving]

NARRATIVE: CASE EVENT DATE: 20140703
